FAERS Safety Report 20762965 (Version 2)
Quarter: 2022Q2

REPORT INFORMATION
  Report Type: Spontaneous
  Country: US (occurrence: US)
  Receive Date: 20220428
  Receipt Date: 20220531
  Transmission Date: 20220721
  Serious: Yes (Other)
  Sender: FDA-Public Use
  Company Number: US-BAYER-2022A061435

PATIENT
  Age: 43 Year
  Sex: Female
  Weight: 71.7 kg

DRUGS (6)
  1. MIRENA [Suspect]
     Active Substance: LEVONORGESTREL
     Indication: Contraception
     Dosage: 20?G/DAY
     Route: 015
     Dates: start: 20210916, end: 20220419
  2. TRANEXAMIC ACID [Concomitant]
     Active Substance: TRANEXAMIC ACID
     Dosage: UNK
     Dates: start: 20220419, end: 20220419
  3. ZETIA [Concomitant]
     Active Substance: EZETIMIBE
     Dosage: 10 MG
     Dates: start: 20220419, end: 20220419
  4. LISINOPRIL [Concomitant]
     Active Substance: LISINOPRIL
     Dosage: 10 MG
     Dates: start: 20220419
  5. IBUPROFEN [Concomitant]
     Active Substance: IBUPROFEN
     Dosage: 800 MG,1 TABLET EVERY 8 HR
     Dates: start: 20220209
  6. OMEPRAZOLE [Concomitant]
     Active Substance: OMEPRAZOLE
     Dosage: 40 MG
     Dates: start: 20220209

REACTIONS (5)
  - Device dislocation [Recovered/Resolved]
  - Heavy menstrual bleeding [None]
  - Ovarian cyst [None]
  - Abnormal uterine bleeding [None]
  - Uterine leiomyoma [None]

NARRATIVE: CASE EVENT DATE: 20210101
